FAERS Safety Report 12881012 (Version 1)
Quarter: 2016Q4

REPORT INFORMATION
  Report Type: Spontaneous
  Country: US (occurrence: US)
  Receive Date: 20161025
  Receipt Date: 20161025
  Transmission Date: 20170207
  Serious: No
  Sender: FDA-Public Use
  Company Number: US-JNJFOC-20160900250

PATIENT
  Age: 32 Year
  Sex: Male
  Weight: 94.8 kg

DRUGS (1)
  1. RISPERDAL CONSTA [Suspect]
     Active Substance: RISPERIDONE
     Indication: SCHIZOPHRENIA
     Route: 065

REACTIONS (3)
  - Hallucination, auditory [Unknown]
  - Anxiety [Unknown]
  - Stress [Unknown]
